FAERS Safety Report 7210513-5 (Version None)
Quarter: 2010Q4

REPORT INFORMATION
  Report Type: 
  Country: None (occurrence: None)
  Receive Date: 20101223
  Receipt Date: 20101213
  Transmission Date: 20110411
  Serious: Yes (Hospitalization)
  Sender: FDA-Public Use
  Company Number: MSTR-NO-1012S-0388

PATIENT
  Age: 65 Year

DRUGS (1)
  1. METASTRON [Suspect]
     Indication: METASTATIC PAIN
     Dosage: 2 MGQ, SINGLE DOSE, I.V.
     Route: 042
     Dates: start: 20101125, end: 20101125

REACTIONS (2)
  - EATING DISORDER [None]
  - NAUSEA [None]
